FAERS Safety Report 18145657 (Version 1)
Quarter: 2020Q3

REPORT INFORMATION
  Report Type: Spontaneous
  Country: CN (occurrence: CN)
  Receive Date: 20200813
  Receipt Date: 20200813
  Transmission Date: 20201103
  Serious: Yes (Other)
  Sender: FDA-Public Use
  Company Number: CN-009507513-2008CHN007601

PATIENT
  Age: 81 Year
  Sex: Male

DRUGS (3)
  1. SODIUM CHLORIDE. [Concomitant]
     Active Substance: SODIUM CHLORIDE
     Dosage: 0.9% , Q12H, IVGTT
     Route: 041
     Dates: start: 20200702
  2. TIENAM [Suspect]
     Active Substance: CILASTATIN SODIUM\IMIPENEM
     Indication: ANTI-INFECTIVE THERAPY
     Dosage: 0.5 GRAM, Q12H
     Dates: start: 20200702, end: 20200715
  3. AVELOX [Suspect]
     Active Substance: MOXIFLOXACIN HYDROCHLORIDE
     Indication: ANTI-INFECTIVE THERAPY
     Dosage: 0.4 GRAM, QD
     Dates: start: 20200703, end: 20200713

REACTIONS (3)
  - Delirium [Recovered/Resolved]
  - Restlessness [Recovered/Resolved]
  - Choreoathetosis [Unknown]

NARRATIVE: CASE EVENT DATE: 20200714
